FAERS Safety Report 15223465 (Version 1)
Quarter: 2018Q3

REPORT INFORMATION
  Report Type: Spontaneous
  Country: US (occurrence: US)
  Receive Date: 20180731
  Receipt Date: 20180731
  Transmission Date: 20181010
  Serious: No
  Sender: FDA-Public Use
  Company Number: US-ENDO PHARMACEUTICALS INC-2017-005056

PATIENT
  Age: 71 Year
  Sex: Male
  Weight: 88.4 kg

DRUGS (1)
  1. TESTOPEL [Suspect]
     Active Substance: TESTOSTERONE
     Indication: BLOOD TESTOSTERONE DECREASED
     Dosage: 450 MG, SIX (75 MG) PELLETS, EVERY 4 MONTHS
     Route: 058
     Dates: start: 201608

REACTIONS (6)
  - Implant site haemorrhage [Not Recovered/Not Resolved]
  - Implant site swelling [Not Recovered/Not Resolved]
  - Expulsion of medication [Not Recovered/Not Resolved]
  - Implant site extravasation [Not Recovered/Not Resolved]
  - Implant site pain [Unknown]
  - Blood testosterone decreased [Unknown]

NARRATIVE: CASE EVENT DATE: 201610
